FAERS Safety Report 24961220 (Version 2)
Quarter: 2025Q1

REPORT INFORMATION
  Report Type: Report from Study
  Country: US (occurrence: US)
  Receive Date: 20250212
  Receipt Date: 20250225
  Transmission Date: 20250409
  Serious: Yes (Other)
  Sender: ABBVIE
  Company Number: US-ABBVIE-6124184

PATIENT
  Age: 62 Year
  Sex: Female
  Weight: 68.945 kg

DRUGS (2)
  1. SKYRIZI [Suspect]
     Active Substance: RISANKIZUMAB-RZAA
     Indication: Crohn^s disease
     Dosage: FORM STRENGTH: 360MG
     Route: 058
     Dates: start: 20240301
  2. MYCOPHENOLIC ACID [Concomitant]
     Active Substance: MYCOPHENOLIC ACID
     Indication: Interstitial lung disease

REACTIONS (7)
  - Skin cancer [Not Recovered/Not Resolved]
  - Diabetes mellitus [Recovering/Resolving]
  - Glycosylated haemoglobin increased [Recovered/Resolved]
  - Dizziness [Recovered/Resolved with Sequelae]
  - Asthenia [Recovered/Resolved with Sequelae]
  - Back pain [Not Recovered/Not Resolved]
  - Urine odour abnormal [Not Recovered/Not Resolved]

NARRATIVE: CASE EVENT DATE: 20240801
